FAERS Safety Report 17874545 (Version 1)
Quarter: 2020Q2

REPORT INFORMATION
  Report Type: Spontaneous
  Country: IN (occurrence: IN)
  Receive Date: 20200609
  Receipt Date: 20200609
  Transmission Date: 20200714
  Serious: Yes (Hospitalization)
  Sender: FDA-Public Use
  Company Number: IN-UNICHEM PHARMACEUTICALS (USA) INC-UCM202005-000661

PATIENT
  Age: 3 Year
  Sex: Male

DRUGS (1)
  1. CLONIDINE HCL [Suspect]
     Active Substance: CLONIDINE HYDROCHLORIDE
     Indication: ACCIDENTAL EXPOSURE TO PRODUCT BY CHILD
     Dosage: TWO TABLETS 0.1 MG EACH AND THIRD ONE TAKEN OUT OF MOUTH
     Route: 048

REACTIONS (8)
  - Bradycardia [Recovered/Resolved]
  - Toxicity to various agents [Recovered/Resolved]
  - Accidental exposure to product by child [Unknown]
  - Lethargy [Recovered/Resolved]
  - Respiratory depression [Recovered/Resolved]
  - Tricuspid valve incompetence [Recovered/Resolved]
  - Hypotension [Recovered/Resolved]
  - Blood creatine phosphokinase MB increased [Recovered/Resolved]
